FAERS Safety Report 6098900-2 (Version None)
Quarter: 2009Q1

REPORT INFORMATION
  Report Type: 
  Country: None (occurrence: None)
  Receive Date: 20090302
  Receipt Date: 20090216
  Transmission Date: 20090719
  Serious: Yes (Death, Life-Threatening, Hospitalization, Disabling)
  Sender: FDA-Public Use
  Company Number: DE-CELGENEUS-062-C5013-09020582

PATIENT
  Sex: Male
  Weight: 78 kg

DRUGS (3)
  1. THALIDOMIDE [Suspect]
     Indication: MULTIPLE MYELOMA
     Route: 048
     Dates: start: 20090129, end: 20090209
  2. MELPHALAN [Suspect]
     Indication: MULTIPLE MYELOMA
     Route: 065
     Dates: start: 20090129, end: 20090131
  3. PREDNISONE [Suspect]
     Indication: MULTIPLE MYELOMA
     Route: 065

REACTIONS (7)
  - BONE PAIN [None]
  - COUGH [None]
  - DIZZINESS [None]
  - HEPATITIS B [None]
  - MULTI-ORGAN FAILURE [None]
  - NAUSEA [None]
  - SEPSIS [None]
